FAERS Safety Report 14668127 (Version 1)
Quarter: 2018Q1

REPORT INFORMATION
  Report Type: Spontaneous
  Country: US (occurrence: US)
  Receive Date: 20180321
  Receipt Date: 20180321
  Transmission Date: 20180509
  Serious: Yes (Life-Threatening, Hospitalization, Disabling, Other)
  Sender: FDA-Public Use
  Company Number: None

PATIENT
  Age: 70 Year
  Sex: Male
  Weight: 80.1 kg

DRUGS (13)
  1. SAW PALMETO [Concomitant]
  2. LIDOCAINE. [Suspect]
     Active Substance: LIDOCAINE
     Indication: ANAESTHESIA
     Route: 054
     Dates: start: 20160129
  3. ASPIRIN 81MG [Concomitant]
     Active Substance: ASPIRIN
  4. CARVEDILOL. [Concomitant]
     Active Substance: CARVEDILOL
  5. GRANBERY CAP [Concomitant]
  6. VITAMIN C 500MG [Concomitant]
  7. EPLERENONE. [Concomitant]
     Active Substance: EPLERENONE
  8. ATORVASTATIN [Concomitant]
     Active Substance: ATORVASTATIN
  9. VITAMIN 12 [Concomitant]
  10. MILK THISLE [Concomitant]
  11. PLAVIX [Concomitant]
     Active Substance: CLOPIDOGREL BISULFATE
  12. LISINOPRIL. [Concomitant]
     Active Substance: LISINOPRIL
  13. FOLIC ACID 400MG [Concomitant]

REACTIONS (6)
  - Vomiting [None]
  - Arteriospasm coronary [None]
  - Myocardial infarction [None]
  - Overdose [None]
  - Ischaemic cardiomyopathy [None]
  - Legal problem [None]

NARRATIVE: CASE EVENT DATE: 20160129
